FAERS Safety Report 6262639-0 (Version None)
Quarter: 2009Q3

REPORT INFORMATION
  Report Type: 
  Country: None (occurrence: None)
  Receive Date: 20090709
  Receipt Date: 20090625
  Transmission Date: 20100115
  Serious: Yes (Hospitalization)
  Sender: FDA-Public Use
  Company Number: FR-GENENTECH-282666

PATIENT
  Sex: Male

DRUGS (7)
  1. RITUXIMAB [Suspect]
     Indication: CHRONIC LYMPHOCYTIC LEUKAEMIA
     Dosage: 463 MG, QD
     Route: 041
     Dates: start: 20081029, end: 20081029
  2. FLUDARABINE PHOSPHATE [Suspect]
     Indication: CHRONIC LYMPHOCYTIC LEUKAEMIA
     Dosage: 75 NG, QD
     Route: 048
     Dates: start: 20081030, end: 20081101
  3. CYCLOPHOSPHAMIDE [Suspect]
     Indication: NEOPLASM MALIGNANT
     Dosage: 250 MG/KG, QD
     Route: 048
     Dates: start: 20081030, end: 20081101
  4. TAHOR [Concomitant]
     Indication: DRUG USE FOR UNKNOWN INDICATION
  5. GLUCOR [Concomitant]
     Indication: DRUG USE FOR UNKNOWN INDICATION
  6. GLUCOPHAGE [Concomitant]
     Indication: DRUG USE FOR UNKNOWN INDICATION
  7. NOVONORM [Concomitant]
     Indication: DRUG USE FOR UNKNOWN INDICATION

REACTIONS (5)
  - HYPERKALAEMIA [None]
  - HYPERPHOSPHATAEMIA [None]
  - HYPERURICAEMIA [None]
  - HYPOCALCAEMIA [None]
  - RENAL FAILURE ACUTE [None]
